FAERS Safety Report 16710734 (Version 1)
Quarter: 2019Q3

REPORT INFORMATION
  Report Type: Spontaneous
  Country: NL (occurrence: DE)
  Receive Date: 20190816
  Receipt Date: 20190816
  Transmission Date: 20191004
  Serious: Yes (Hospitalization, Other)
  Sender: FDA-Public Use
  Company Number: DE-FRESENIUS KABI-FK201908820

PATIENT
  Age: 30 Year
  Sex: Male
  Weight: 75 kg

DRUGS (1)
  1. LEVOFLOXACIN (MANUFACTURER UNKNOWN) [Suspect]
     Active Substance: LEVOFLOXACIN
     Indication: PRODUCT USED FOR UNKNOWN INDICATION
     Route: 065
     Dates: start: 201901

REACTIONS (20)
  - Eye inflammation [Unknown]
  - Panic attack [Unknown]
  - Restlessness [Unknown]
  - Epilepsy [Unknown]
  - Major depression [Unknown]
  - Impaired work ability [Unknown]
  - Muscle twitching [Unknown]
  - Alopecia [Unknown]
  - Eye pain [Unknown]
  - Memory impairment [Unknown]
  - Pain in extremity [Unknown]
  - Headache [Unknown]
  - Palpitations [Unknown]
  - Weight decreased [Unknown]
  - Hypoaesthesia [Unknown]
  - Dysuria [Unknown]
  - Hospitalisation [Unknown]
  - Disorientation [Unknown]
  - Mobility decreased [Unknown]
  - Sleep disorder [Unknown]

NARRATIVE: CASE EVENT DATE: 201901
